FAERS Safety Report 23555439 (Version 1)
Quarter: 2024Q1

REPORT INFORMATION
  Report Type: Spontaneous
  Country: US (occurrence: US)
  Receive Date: 20240222
  Receipt Date: 20240222
  Transmission Date: 20240410
  Serious: No
  Sender: FDA-Public Use
  Company Number: US-LANTHEUS-LMI-2023-01240

PATIENT
  Sex: Male

DRUGS (1)
  1. DEFINITY [Suspect]
     Active Substance: PERFLUTREN
     Indication: Product used for unknown indication
     Dosage: UNK
     Dates: start: 20231017, end: 20231017

REACTIONS (4)
  - Gait inability [Unknown]
  - Muscle spasms [Unknown]
  - Dyspnoea [Unknown]
  - Pain [Unknown]

NARRATIVE: CASE EVENT DATE: 20231017
